FAERS Safety Report 7301165-4 (Version None)
Quarter: 2011Q1

REPORT INFORMATION
  Report Type: 
  Country: None (occurrence: None)
  Receive Date: 20110218
  Receipt Date: 20110210
  Transmission Date: 20110831
  Serious: Yes (Death, Hospitalization)
  Sender: FDA-Public Use
  Company Number: PL-GENZYME-THYM-1002058

PATIENT
  Age: 30 Year
  Sex: Male

DRUGS (4)
  1. THYMOGLOBULIN [Suspect]
     Indication: BONE MARROW CONDITIONING REGIMEN
     Dosage: 10 MG/KG, UNK
     Route: 042
     Dates: start: 20000101, end: 20000101
  2. CYCLOPHOSPHAMIDE [Concomitant]
     Indication: BONE MARROW CONDITIONING REGIMEN
     Dosage: 120 MG/KG, UNK
     Dates: start: 20010101
  3. CYCLOSPORINE [Concomitant]
     Indication: PROPHYLAXIS AGAINST GRAFT VERSUS HOST DISEASE
  4. BUSULPHAN [Concomitant]
     Indication: BONE MARROW CONDITIONING REGIMEN
     Dosage: 16 MG/KG, UNK
     Dates: start: 20010101

REACTIONS (11)
  - MUCOSAL INFLAMMATION [None]
  - CYTOMEGALOVIRUS INFECTION [None]
  - ISCHAEMIC STROKE [None]
  - CHRONIC GRAFT VERSUS HOST DISEASE [None]
  - BRONCHOPNEUMONIA [None]
  - C-REACTIVE PROTEIN INCREASED [None]
  - CYSTITIS HAEMORRHAGIC [None]
  - DIARRHOEA [None]
  - GLOMERULONEPHRITIS MINIMAL LESION [None]
  - ACUTE GRAFT VERSUS HOST DISEASE [None]
  - NEPHROTIC SYNDROME [None]
